FAERS Safety Report 5711962-4 (Version None)
Quarter: 2008Q2

REPORT INFORMATION
  Report Type: 
  Country: None (occurrence: None)
  Receive Date: 20080421
  Receipt Date: 20080416
  Transmission Date: 20081010
  Serious: Yes (Other)
  Sender: FDA-Public Use
  Company Number: US-GILEAD-2008-0016115

PATIENT
  Sex: Male
  Weight: 85.806 kg

DRUGS (2)
  1. TRUVADA [Suspect]
     Indication: HEPATITIS B
     Route: 048
     Dates: start: 20061001, end: 20080101
  2. TRUVADA [Suspect]
     Route: 048
     Dates: start: 20080415

REACTIONS (1)
  - CHROMATURIA [None]
